FAERS Safety Report 5329329-X (Version None)
Quarter: 2007Q2

REPORT INFORMATION
  Report Type: 
  Country: None (occurrence: None)
  Receive Date: 20070518
  Receipt Date: 20070507
  Transmission Date: 20071010
  Serious: Yes (Other)
  Sender: FDA-Public Use
  Company Number: US-PFIZER INC-2007038222

PATIENT
  Sex: Female
  Weight: 82.727 kg

DRUGS (6)
  1. CHANTIX [Suspect]
     Indication: SMOKING CESSATION THERAPY
  2. DILANTIN [Suspect]
     Indication: EPILEPSY
  3. AVAPRO [Concomitant]
  4. DEPAKOTE [Concomitant]
  5. NEXIUM [Concomitant]
  6. CYMBALTA [Concomitant]

REACTIONS (5)
  - CONSTIPATION [None]
  - DRUG LEVEL DECREASED [None]
  - FLATULENCE [None]
  - HYPERTENSION [None]
  - SLEEP DISORDER [None]
